FAERS Safety Report 10407496 (Version 1)
Quarter: 2014Q3

REPORT INFORMATION
  Report Type: Spontaneous
  Country: US (occurrence: US)
  Receive Date: 20140825
  Receipt Date: 20140825
  Transmission Date: 20150326
  Serious: Yes (Hospitalization)
  Sender: FDA-Public Use
  Company Number: US-009507513-1408USA009351

PATIENT
  Sex: Female

DRUGS (1)
  1. NUVARING [Suspect]
     Active Substance: ETHINYL ESTRADIOL\ETONOGESTREL

REACTIONS (7)
  - Migraine [Unknown]
  - Deep vein thrombosis [Unknown]
  - Anaemia [Unknown]
  - Transient ischaemic attack [Recovered/Resolved]
  - Thrombocytopenia [Unknown]
  - Deep vein thrombosis [Unknown]
  - Menorrhagia [Unknown]

NARRATIVE: CASE EVENT DATE: 20060816
